FAERS Safety Report 8677359 (Version 2)
Quarter: 2013Q2

REPORT INFORMATION
  Report Type: Spontaneous
  Country: JP (occurrence: JP)
  Receive Date: 20120723
  Receipt Date: 20130403
  Transmission Date: 20140414
  Serious: Yes (Hospitalization, Other)
  Sender: FDA-Public Use
  Company Number: JP-BRISTOL-MYERS SQUIBB COMPANY-16764722

PATIENT
  Age: 61 Year
  Sex: Male
  Weight: 55 kg

DRUGS (4)
  1. BARACLUDE TABS 0.5 MG [Suspect]
     Indication: PROPHYLAXIS
     Route: 048
     Dates: start: 20110819, end: 20120614
  2. LAMIVUDINE [Suspect]
     Dates: start: 20120614, end: 20120628
  3. BAKTAR [Concomitant]
     Indication: PROPHYLAXIS
     Route: 048
     Dates: start: 20110929
  4. PARIET [Concomitant]
     Indication: GASTRITIS PROPHYLAXIS
     Route: 048
     Dates: start: 20110906, end: 20120522

REACTIONS (4)
  - Generalised oedema [Recovering/Resolving]
  - Dyspnoea [Not Recovered/Not Resolved]
  - Cardiac failure [Recovering/Resolving]
  - Weight increased [Recovered/Resolved]
